FAERS Safety Report 14519135 (Version 1)
Quarter: 2018Q1

REPORT INFORMATION
  Report Type: Spontaneous
  Country: FR (occurrence: FR)
  Receive Date: 20180212
  Receipt Date: 20180212
  Transmission Date: 20180509
  Serious: Yes (Death)
  Sender: FDA-Public Use
  Company Number: FR-MYLANLABS-2018M1008489

PATIENT
  Age: 31 Year
  Sex: Female

DRUGS (4)
  1. BUPIVACAINE. [Suspect]
     Active Substance: BUPIVACAINE
     Indication: SPINAL ANAESTHESIA
     Dosage: 10 MG, UNK
  2. SUFENTANIL [Suspect]
     Active Substance: SUFENTANIL
     Indication: SPINAL ANAESTHESIA
     Dosage: UNK
  3. MORPHINE [Suspect]
     Active Substance: MORPHINE
     Indication: SPINAL ANAESTHESIA
     Dosage: UNK
  4. EPHEDRINE. [Concomitant]
     Active Substance: EPHEDRINE
     Indication: PROPHYLAXIS
     Dosage: 2 DF, UNK

REACTIONS (3)
  - Arrhythmia [Fatal]
  - Conduction disorder [Fatal]
  - Cardio-respiratory arrest [Fatal]
